FAERS Safety Report 9017075 (Version 2)
Quarter: 2014Q3

REPORT INFORMATION
  Report Type: Report from Study
  Country: MX (occurrence: MX)
  Receive Date: 20130117
  Receipt Date: 20140731
  Transmission Date: 20150326
  Serious: No
  Sender: FDA-Public Use
  Company Number: PHHY2013MX004312

PATIENT
  Age: 71 Year
  Sex: Female

DRUGS (3)
  1. MOTILIUM [Concomitant]
     Active Substance: DOMPERIDONE
     Indication: COLITIS
     Dosage: 1 DF (10 MG), THREE TIMES A DAY
     Route: 048
     Dates: start: 2010
  2. DIOVAN [Suspect]
     Active Substance: VALSARTAN
     Indication: HYPERTENSION
     Dosage: 1 DF (80 MG), DAILY
     Route: 048
     Dates: start: 201210, end: 2014
  3. DRONEDARONE [Concomitant]
     Active Substance: DRONEDARONE
     Indication: ARRHYTHMIA
     Dosage: 0.5 DF (400 MG), TWO TIMES A DAY
     Route: 048
     Dates: start: 201208

REACTIONS (3)
  - Diarrhoea [Recovered/Resolved]
  - Feeling abnormal [Recovered/Resolved]
  - Abdominal discomfort [Recovered/Resolved]

NARRATIVE: CASE EVENT DATE: 201301
